FAERS Safety Report 8327348-2 (Version None)
Quarter: 2012Q2

REPORT INFORMATION
  Report Type: 
  Country: None (occurrence: None)
  Receive Date: 20120502
  Receipt Date: 20120423
  Transmission Date: 20120825
  Serious: No
  Sender: FDA-Public Use
  Company Number: US-BIOGENIDEC-2012BI014181

PATIENT
  Sex: Female

DRUGS (2)
  1. REBIF [Concomitant]
  2. TYSABRI [Suspect]
     Indication: MULTIPLE SCLEROSIS
     Route: 042
     Dates: start: 20080101, end: 20080407

REACTIONS (2)
  - THROAT IRRITATION [None]
  - HYPERSENSITIVITY [None]
